FAERS Safety Report 14512180 (Version 1)
Quarter: 2018Q1

REPORT INFORMATION
  Report Type: Spontaneous
  Country: US (occurrence: US)
  Receive Date: 20180209
  Receipt Date: 20180209
  Transmission Date: 20180509
  Serious: No
  Sender: FDA-Public Use
  Company Number: US-DSJP-DSU-2017-138382

PATIENT
  Sex: Female

DRUGS (1)
  1. EVOXAC AG [Suspect]
     Active Substance: CEVIMELINE HYDROCHLORIDE
     Indication: SJOGREN^S SYNDROME
     Dosage: 1-4 TABLETS, QD
     Route: 048

REACTIONS (3)
  - Incorrect dose administered [Unknown]
  - Chills [Unknown]
  - Hyperhidrosis [Unknown]
